FAERS Safety Report 5725996-7 (Version None)
Quarter: 2008Q2

REPORT INFORMATION
  Report Type: 
  Country: None (occurrence: None)
  Receive Date: 20080501
  Receipt Date: 20080501
  Transmission Date: 20081010
  Serious: No
  Sender: FDA-Public Use
  Company Number: None

PATIENT
  Age: 81 Year
  Sex: Female

DRUGS (1)
  1. MACRODANTIN [Suspect]
     Dates: start: 20001211, end: 20050114

REACTIONS (12)
  - ALANINE AMINOTRANSFERASE INCREASED [None]
  - ANTINUCLEAR ANTIBODY POSITIVE [None]
  - ARTHRALGIA [None]
  - ASPARTATE AMINOTRANSFERASE INCREASED [None]
  - FALL [None]
  - FATIGUE [None]
  - GLOBULINS INCREASED [None]
  - LIVER FUNCTION TEST ABNORMAL [None]
  - LIVER INJURY [None]
  - MUSCULOSKELETAL CHEST PAIN [None]
  - PULMONARY FIBROSIS [None]
  - TENDERNESS [None]
